FAERS Safety Report 25354280 (Version 1)
Quarter: 2025Q2

REPORT INFORMATION
  Report Type: Spontaneous
  Country: US (occurrence: US)
  Receive Date: 20250523
  Receipt Date: 20250523
  Transmission Date: 20250716
  Serious: Yes (Hospitalization, Other)
  Sender: SANOFI AVENTIS
  Company Number: US-SANOFI-02530024

PATIENT
  Age: 40 Year
  Sex: Female

DRUGS (1)
  1. DUPIXENT [Suspect]
     Active Substance: DUPILUMAB
     Indication: Neurodermatitis
     Dosage: 300 MG, QOW
     Route: 065
     Dates: start: 202502

REACTIONS (4)
  - Diabetes mellitus [Unknown]
  - Dehydration [Unknown]
  - Muscle spasms [Unknown]
  - Skin irritation [Unknown]

NARRATIVE: CASE EVENT DATE: 20250501
